FAERS Safety Report 16658661 (Version 2)
Quarter: 2019Q3

REPORT INFORMATION
  Report Type: Report from Study
  Country: US (occurrence: US)
  Receive Date: 20190801
  Receipt Date: 20190828
  Transmission Date: 20191004
  Serious: Yes (Hospitalization, Other)
  Sender: FDA-Public Use
  Company Number: US-GILEAD-2019-0421168

PATIENT
  Age: 35 Year
  Sex: Male
  Weight: 215 kg

DRUGS (1)
  1. BICTEGRAVIR W/EMTRICITABINE/TENOFOVIR ALAFENAMIDE [Suspect]
     Active Substance: BICTEGRAVIR\EMTRICITABINE\TENOFOVIR ALAFENAMIDE
     Indication: HIV INFECTION
     Dosage: 50/200/25, ORAL, ONCE A DAY
     Route: 048

REACTIONS (1)
  - Pneumocystis jirovecii infection [Not Recovered/Not Resolved]

NARRATIVE: CASE EVENT DATE: 20190701
